FAERS Safety Report 9412338 (Version 2)
Quarter: 2013Q3

REPORT INFORMATION
  Report Type: Spontaneous
  Country: US (occurrence: US)
  Receive Date: 20130722
  Receipt Date: 20130830
  Transmission Date: 20140515
  Serious: Yes (Other)
  Sender: FDA-Public Use
  Company Number: US-PFIZER INC-2013212226

PATIENT
  Age: 80 Year
  Sex: Female

DRUGS (3)
  1. LYRICA [Suspect]
     Dosage: 75 MG, 1X/DAY
     Route: 048
  2. LORTAB [Suspect]
     Dosage: 10 MG, UNK
  3. PROMETHAZINE [Concomitant]
     Dosage: 25 MG, UNK

REACTIONS (1)
  - Peripheral nerve injury [Unknown]
